FAERS Safety Report 17865350 (Version 1)
Quarter: 2020Q2

REPORT INFORMATION
  Report Type: Spontaneous
  Country: US (occurrence: US)
  Receive Date: 20200604
  Receipt Date: 20200604
  Transmission Date: 20200714
  Serious: Yes (Hospitalization)
  Sender: FDA-Public Use
  Company Number: None

PATIENT
  Age: 61 Year
  Sex: Male

DRUGS (18)
  1. CYCLOBENZAPR [Concomitant]
     Active Substance: CYCLOBENZAPRINE
  2. OXYCODONE [Concomitant]
     Active Substance: OXYCODONE
  3. TEMAZEPAM. [Concomitant]
     Active Substance: TEMAZEPAM
  4. AMLODIPINE [Concomitant]
     Active Substance: AMLODIPINE BESYLATE
  5. DULOXETINE. [Concomitant]
     Active Substance: DULOXETINE
  6. METOCLOPRAM [Concomitant]
     Active Substance: METOCLOPRAMIDE
  7. COSENTYX [Suspect]
     Active Substance: SECUKINUMAB
     Indication: ANKYLOSING SPONDYLITIS
     Dosage: Q4WKS
     Route: 058
     Dates: start: 20200420
  8. ATORVASTATIN [Concomitant]
     Active Substance: ATORVASTATIN
  9. DICLOFENAC [Concomitant]
     Active Substance: DICLOFENAC
  10. PREDNISONE. [Concomitant]
     Active Substance: PREDNISONE
  11. MONTELUKAST [Concomitant]
     Active Substance: MONTELUKAST SODIUM
  12. FINASTERIDE. [Concomitant]
     Active Substance: FINASTERIDE
  13. TAMSULOSIN [Concomitant]
     Active Substance: TAMSULOSIN
  14. ZOLPIDEM [Concomitant]
     Active Substance: ZOLPIDEM TARTRATE
  15. AMOX [Concomitant]
     Active Substance: UNSPECIFIED INGREDIENT
  16. OMEPRAZOLE. [Concomitant]
     Active Substance: OMEPRAZOLE
  17. PREGABALIN. [Concomitant]
     Active Substance: PREGABALIN
  18. XTAMPZA [Concomitant]
     Active Substance: OXYCODONE

REACTIONS (1)
  - Pneumonia [None]

NARRATIVE: CASE EVENT DATE: 20200604
